FAERS Safety Report 8605060-X (Version None)
Quarter: 2012Q3

REPORT INFORMATION
  Report Type: 
  Country: None (occurrence: None)
  Receive Date: 20120808
  Receipt Date: 20120808
  Transmission Date: 20120928
  Serious: No
  Sender: FDA-Public Use
  Company Number: None

PATIENT
  Age: 66 Year
  Sex: Male
  Weight: 131.5 kg

DRUGS (2)
  1. DABIGATRAN [Suspect]
     Indication: DEEP VEIN THROMBOSIS
     Dosage: 150 MG BID PO
     Route: 048
     Dates: start: 20111125, end: 20120120
  2. DABIGATRAN [Suspect]
     Indication: ATRIAL FIBRILLATION
     Dosage: 150 MG BID PO
     Route: 048
     Dates: start: 20111125, end: 20120120

REACTIONS (1)
  - DRUG HYPERSENSITIVITY [None]
